FAERS Safety Report 8978245 (Version 1)
Quarter: 2012Q4

REPORT INFORMATION
  Report Type: Spontaneous
  Country: US (occurrence: None)
  Receive Date: 20121218
  Receipt Date: 20121218
  Transmission Date: 20130627
  Serious: No
  Sender: FDA-Public Use
  Company Number: None

PATIENT
  Age: 60 Year
  Sex: Female
  Weight: 65.77 kg

DRUGS (1)
  1. ZOCOR [Suspect]
     Indication: LDL INCREASED
     Route: 048
     Dates: start: 20121004

REACTIONS (4)
  - Rash [None]
  - Pruritus [None]
  - Swelling [None]
  - Hypersensitivity [None]
